FAERS Safety Report 15334091 (Version 8)
Quarter: 2019Q2

REPORT INFORMATION
  Report Type: Spontaneous
  Country: FR (occurrence: FR)
  Receive Date: 20180830
  Receipt Date: 20190517
  Transmission Date: 20190711
  Serious: Yes (Hospitalization, Other)
  Sender: FDA-Public Use
  Company Number: PHHY2018FR068144

PATIENT
  Age: 78 Year
  Sex: Female
  Weight: 50 kg

DRUGS (16)
  1. IXAZOMIB [Suspect]
     Active Substance: IXAZOMIB
     Indication: PLASMA CELL MYELOMA
     Dosage: 4 MG, QW
     Route: 048
     Dates: start: 20180123
  2. REVLIMID [Suspect]
     Active Substance: LENALIDOMIDE
     Indication: PLASMA CELL MYELOMA
     Dosage: 25 MG, QD
     Route: 048
     Dates: start: 20180122
  3. REVLIMID [Suspect]
     Active Substance: LENALIDOMIDE
     Dosage: 15 MG, QD
     Route: 048
     Dates: start: 20180122
  4. REVLIMID [Suspect]
     Active Substance: LENALIDOMIDE
     Dosage: 25 MG, QD
     Route: 048
     Dates: start: 20180124
  5. BACTRIM [Suspect]
     Active Substance: SULFAMETHOXAZOLE\TRIMETHOPRIM
     Indication: PRODUCT USED FOR UNKNOWN INDICATION
     Dosage: UNK
     Route: 065
  6. BIPRETERAX [Concomitant]
     Active Substance: INDAPAMIDE\PERINDOPRIL
     Indication: HYPERTENSION
     Dosage: 1 DF, QD (10MG/2.5 MG, QD)
     Route: 065
  7. DEXAMETHASONE. [Suspect]
     Active Substance: DEXAMETHASONE
     Indication: PLASMA CELL MYELOMA
     Dosage: 40 MG, QW
     Route: 048
     Dates: start: 20180122
  8. AUGMENTIN [Concomitant]
     Active Substance: AMOXICILLIN\CLAVULANATE POTASSIUM
     Indication: INFECTION
     Dosage: 1 G, TID
     Route: 048
     Dates: start: 20180126, end: 20180202
  9. CIPROFLOXACINE [Concomitant]
     Active Substance: CIPROFLOXACIN
     Indication: INFECTION
     Dosage: 1 G, QD
     Route: 048
     Dates: start: 20180126, end: 20180131
  10. DEXAMETHASONE. [Suspect]
     Active Substance: DEXAMETHASONE
     Dosage: 40 MG, QW
     Route: 048
     Dates: start: 20180124
  11. REVLIMID [Suspect]
     Active Substance: LENALIDOMIDE
     Dosage: 15 MG, QD
     Route: 048
     Dates: start: 20180329
  12. PENTACARINAT [Concomitant]
     Active Substance: PENTAMIDINE ISETHIONATE
     Indication: PRODUCT USED FOR UNKNOWN INDICATION
     Dosage: 300 MG, QMO
     Route: 065
     Dates: start: 20180602
  13. ROVAMYCINE [Suspect]
     Active Substance: SPIRAMYCIN
     Indication: PRODUCT USED FOR UNKNOWN INDICATION
     Dosage: 1.5 UNK, UNK
     Route: 065
     Dates: start: 20180207, end: 20180208
  14. DOLIPRANE [Concomitant]
     Active Substance: ACETAMINOPHEN
     Indication: PAIN
     Dosage: UNK
     Route: 065
  15. VENLAFAXINE [Concomitant]
     Active Substance: VENLAFAXINE HYDROCHLORIDE
     Indication: DEPRESSION
     Dosage: 1 DF, QD
     Route: 065
  16. ALLOPURINOL. [Suspect]
     Active Substance: ALLOPURINOL
     Indication: HYPERURICAEMIA
     Dosage: 300 MG, QD
     Route: 065
     Dates: start: 20171230, end: 20180221

REACTIONS (44)
  - Gastroenteritis [Recovered/Resolved]
  - Infection [Recovered/Resolved]
  - Cheilitis [Unknown]
  - Weight decreased [Recovered/Resolved]
  - General physical health deterioration [Unknown]
  - Bronchitis [Unknown]
  - Hepatocellular injury [Recovering/Resolving]
  - Neutropenia [Recovered/Resolved]
  - Pain [Unknown]
  - Skin fissures [Unknown]
  - Lung infection [Recovering/Resolving]
  - Mucosal inflammation [Recovered/Resolved]
  - Lividity [Unknown]
  - Rash erythematous [Recovered/Resolved]
  - Plasma cell myeloma [Recovering/Resolving]
  - Staphylococcal sepsis [Recovered/Resolved]
  - White blood cell count decreased [Recovered/Resolved]
  - Lymphocyte count decreased [Recovering/Resolving]
  - Fatigue [Recovered/Resolved]
  - Abdominal pain lower [Unknown]
  - Hepatic failure [Recovering/Resolving]
  - Inflammation [Recovering/Resolving]
  - White blood cell count decreased [Recovered/Resolved]
  - Nasopharyngitis [Unknown]
  - Chills [Unknown]
  - Diarrhoea [Unknown]
  - Hyperthermia [Recovered/Resolved]
  - Anaemia [Recovered/Resolved]
  - Plantar erythema [Recovering/Resolving]
  - Thrombocytopenia [Recovered/Resolved]
  - Toxic skin eruption [Recovered/Resolved]
  - Dyspnoea [Unknown]
  - Renal failure [Recovering/Resolving]
  - Neutropenia [Recovered/Resolved]
  - Vomiting [Recovered/Resolved]
  - Skin burning sensation [Recovered/Resolved]
  - Rash generalised [Recovered/Resolved]
  - Rash [Recovered/Resolved]
  - Oral discomfort [Recovered/Resolved]
  - Hypercreatininaemia [Not Recovered/Not Resolved]
  - C-reactive protein increased [Recovering/Resolving]
  - Hypoalbuminaemia [Recovered/Resolved]
  - Hypocalcaemia [Recovered/Resolved]
  - Pyrexia [Recovered/Resolved]

NARRATIVE: CASE EVENT DATE: 20180102
